FAERS Safety Report 14313982 (Version 2)
Quarter: 2018Q1

REPORT INFORMATION
  Report Type: Report from Study
  Country: US (occurrence: US)
  Receive Date: 20171221
  Receipt Date: 20180131
  Transmission Date: 20180509
  Serious: No
  Sender: FDA-Public Use
  Company Number: US-OTSUKA-2017_026729

PATIENT
  Sex: Female

DRUGS (1)
  1. BREXPIPRAZOLE [Suspect]
     Active Substance: BREXPIPRAZOLE
     Indication: MAJOR DEPRESSION
     Dosage: 1 MG, UNK [STRENGTH: 1 MG]
     Route: 065
     Dates: start: 201710

REACTIONS (1)
  - No adverse event [Unknown]
